FAERS Safety Report 18906164 (Version 1)
Quarter: 2021Q1

REPORT INFORMATION
  Report Type: Report from Study
  Country: CA (occurrence: CA)
  Receive Date: 20210217
  Receipt Date: 20210217
  Transmission Date: 20210420
  Serious: Yes (Other)
  Sender: FDA-Public Use
  Company Number: CA-TEVA-2021-CA-1879136

PATIENT
  Age: 64 Year
  Sex: Female

DRUGS (8)
  1. COPAXONE [Suspect]
     Active Substance: GLATIRAMER ACETATE
     Indication: MULTIPLE SCLEROSIS
     Dates: start: 20180110, end: 2020
  2. BACLOFEN. [Concomitant]
     Active Substance: BACLOFEN
  3. TYLENOL WITH CODEINE [Concomitant]
     Active Substance: ACETAMINOPHEN\CODEINE PHOSPHATE
  4. VITAMIN B12 [Concomitant]
     Active Substance: CYANOCOBALAMIN
  5. VITAMIN D [Concomitant]
     Active Substance: VITAMIN D NOS
  6. GABAPENTIN. [Concomitant]
     Active Substance: GABAPENTIN
  7. CODEINE [Concomitant]
     Active Substance: CODEINE
  8. CITALOPRAM [Concomitant]
     Active Substance: CITALOPRAM HYDROBROMIDE

REACTIONS (5)
  - Chest discomfort [Unknown]
  - Drug hypersensitivity [Unknown]
  - Erythema [Unknown]
  - Vomiting [Unknown]
  - Tracheal stenosis [Unknown]
